FAERS Safety Report 7377075-3 (Version None)
Quarter: 2011Q1

REPORT INFORMATION
  Report Type: 
  Country: None (occurrence: None)
  Receive Date: 20110328
  Receipt Date: 20110316
  Transmission Date: 20110831
  Serious: No
  Sender: FDA-Public Use
  Company Number: US-BIOGENIDEC-2011BI010143

PATIENT
  Sex: Female

DRUGS (2)
  1. AVONEX [Concomitant]
     Indication: MULTIPLE SCLEROSIS
     Route: 030
  2. TYSABRI [Suspect]
     Indication: MULTIPLE SCLEROSIS
     Route: 042
     Dates: start: 20110207

REACTIONS (6)
  - TOOTH ABSCESS [None]
  - TREMOR [None]
  - ERYTHEMA [None]
  - TOOTHACHE [None]
  - EXTRAOCULAR MUSCLE PARESIS [None]
  - DIARRHOEA [None]
